FAERS Safety Report 11229227 (Version 3)
Quarter: 2016Q4

REPORT INFORMATION
  Report Type: Report from Study
  Country: US (occurrence: US)
  Receive Date: 20150630
  Receipt Date: 20161228
  Transmission Date: 20170206
  Serious: Yes (Congenital Anomaly)
  Sender: FDA-Public Use
  Company Number: PHHY2014US076227

PATIENT
  Age: 13 Day
  Sex: Male
  Weight: 3.18 kg

DRUGS (2)
  1. RHUMAB-E25 [Suspect]
     Active Substance: OMALIZUMAB
     Indication: PRODUCT USED FOR UNKNOWN INDICATION
     Dosage: UNK
     Route: 064
  2. AMOXICILLIN. [Suspect]
     Active Substance: AMOXICILLIN
     Indication: UPPER RESPIRATORY TRACT INFECTION
     Route: 065

REACTIONS (8)
  - Upper respiratory tract infection [Unknown]
  - Dacryostenosis congenital [Unknown]
  - Sinusitis [Unknown]
  - Phimosis [Recovered/Resolved]
  - Foetal exposure during pregnancy [Unknown]
  - Teething [Unknown]
  - Ophthalmia neonatorum [Unknown]
  - Diarrhoea [Unknown]

NARRATIVE: CASE EVENT DATE: 20140612
